FAERS Safety Report 5519223-3 (Version None)
Quarter: 2007Q4

REPORT INFORMATION
  Report Type: 
  Country: None (occurrence: None)
  Receive Date: 20071114
  Receipt Date: 20071114
  Transmission Date: 20080405
  Serious: Yes (Life-Threatening, Hospitalization)
  Sender: FDA-Public Use
  Company Number: None

PATIENT
  Age: 37 Year
  Sex: Female
  Weight: 68.0396 kg

DRUGS (2)
  1. MUCINEX DM [Suspect]
     Indication: BRONCHITIS
     Dosage: GUAIFENESIN 1200 MG Q 12 HRS PO
     Route: 048
     Dates: start: 20071110, end: 20071110
  2. MUCINEX DM [Suspect]
     Dosage: DEXTROMETHORPHAN HBR 60 MG Q 12 HRS PO
     Route: 048

REACTIONS (10)
  - ANXIETY [None]
  - ASTHENIA [None]
  - COORDINATION ABNORMAL [None]
  - DIZZINESS [None]
  - DRUG HYPERSENSITIVITY [None]
  - DYSSTASIA [None]
  - FEAR [None]
  - HYPERTENSION [None]
  - PALPITATIONS [None]
  - TACHYCARDIA [None]
